FAERS Safety Report 4602694-4 (Version None)
Quarter: 2005Q1

REPORT INFORMATION
  Report Type: 
  Country: None (occurrence: None)
  Receive Date: 20050307
  Receipt Date: 20050217
  Transmission Date: 20050727
  Serious: Yes (Hospitalization)
  Sender: FDA-Public Use
  Company Number: A-US2005-08906

PATIENT
  Age: 40 Year
  Sex: Female

DRUGS (2)
  1. TRACLEER [Suspect]
     Indication: SKIN ULCER
     Dosage: ORAL
     Route: 048
     Dates: start: 20050101, end: 20050101
  2. PREDNISONE [Concomitant]

REACTIONS (5)
  - ANXIETY [None]
  - ATRIAL FIBRILLATION [None]
  - DYSPNOEA [None]
  - PALPITATIONS [None]
  - TREATMENT NONCOMPLIANCE [None]
